FAERS Safety Report 24458246 (Version 1)
Quarter: 2024Q4

REPORT INFORMATION
  Report Type: Spontaneous
  Country: IT (occurrence: IT)
  Receive Date: 20241018
  Receipt Date: 20241018
  Transmission Date: 20250115
  Serious: Yes (Other)
  Sender: CELLTRION
  Company Number: IT-SA-SAC20240408000635

PATIENT

DRUGS (8)
  1. ADALIMUMAB [Suspect]
     Active Substance: ADALIMUMAB
     Indication: Juvenile idiopathic arthritis
     Dosage: UNK
  2. INFLIXIMAB [Suspect]
     Active Substance: INFLIXIMAB
     Indication: Product used for unknown indication
     Dosage: UNK
  3. METHOTREXATE [Suspect]
     Active Substance: METHOTREXATE
     Indication: Juvenile idiopathic arthritis
     Dosage: UNK
  4. SARILUMAB [Suspect]
     Active Substance: SARILUMAB
     Indication: Juvenile idiopathic arthritis
     Dosage: UNK
     Route: 065
  5. XELJANZ [Suspect]
     Active Substance: TOFACITINIB CITRATE
     Indication: Juvenile idiopathic arthritis
     Dosage: UNK
  6. UPADACITINIB [Concomitant]
     Active Substance: UPADACITINIB
     Dosage: UNK
  7. TOCILIZUMAB [Concomitant]
     Active Substance: TOCILIZUMAB
     Dosage: UNK
  8. ANAKINRA [Concomitant]
     Active Substance: ANAKINRA
     Dosage: UNK

REACTIONS (3)
  - Osteonecrosis [Unknown]
  - Drug ineffective [Unknown]
  - Off label use [Unknown]
